FAERS Safety Report 7587933-2 (Version None)
Quarter: 2011Q3

REPORT INFORMATION
  Report Type: 
  Country: None (occurrence: None)
  Receive Date: 20110705
  Receipt Date: 20110628
  Transmission Date: 20111222
  Serious: Yes (Other)
  Sender: FDA-Public Use
  Company Number: US-AMGEN-USASP2011033041

PATIENT
  Age: 54 Year
  Sex: Female

DRUGS (1)
  1. ENBREL [Suspect]
     Indication: RHEUMATOID ARTHRITIS
     Dosage: 25 MG, 2 TIMES/WK
     Dates: start: 20071024, end: 20110301

REACTIONS (6)
  - RHEUMATOID ARTHRITIS [None]
  - EXCORIATION [None]
  - IMPETIGO [None]
  - STAPHYLOCOCCAL INFECTION [None]
  - FALL [None]
  - PAIN IN EXTREMITY [None]
